FAERS Safety Report 25579025 (Version 3)
Quarter: 2025Q3

REPORT INFORMATION
  Report Type: Report from Study
  Country: US (occurrence: US)
  Receive Date: 20250718
  Receipt Date: 20250806
  Transmission Date: 20251020
  Serious: Yes (Death)
  Sender: BAUSCH AND LOMB
  Company Number: US-BAUSCH-BL-2024-018576

PATIENT
  Age: 83 Year
  Sex: Female

DRUGS (20)
  1. XIFAXAN [Suspect]
     Active Substance: RIFAXIMIN
     Indication: Hepatic cirrhosis
     Route: 048
     Dates: start: 20240613
  2. XIFAXAN [Suspect]
     Active Substance: RIFAXIMIN
     Indication: Hepatic encephalopathy
  3. ASCORBIC ACID [Concomitant]
     Active Substance: ASCORBIC ACID
     Indication: Product used for unknown indication
     Route: 048
  4. ASPIRIN [Concomitant]
     Active Substance: ASPIRIN
     Indication: Product used for unknown indication
     Route: 048
  5. OSCAL [Concomitant]
     Active Substance: CALCIUM CARBONATE
     Indication: Product used for unknown indication
     Route: 048
     Dates: start: 20151015
  6. CYANOCOBALAMIN (VITAMIN B12 ) [Concomitant]
     Indication: Product used for unknown indication
     Dosage: INJECT 1 ML (1000 MCG TOTAL) INTRAMUSCULARLY EVERY 30 (THIRTY) DAYS FOR 6 DOSES
     Route: 030
     Dates: start: 20240306, end: 20240804
  7. LASIX [Concomitant]
     Active Substance: FUROSEMIDE
     Indication: Cardiac failure congestive
     Route: 048
     Dates: start: 20211011
  8. LASIX [Concomitant]
     Active Substance: FUROSEMIDE
     Route: 048
     Dates: start: 20240126
  9. LASIX [Concomitant]
     Active Substance: FUROSEMIDE
     Route: 048
  10. JARDIANCE [Concomitant]
     Active Substance: EMPAGLIFLOZIN
     Indication: Product used for unknown indication
     Route: 048
  11. CHRONULAC [Concomitant]
     Active Substance: LACTULOSE
     Indication: Confusional state
     Route: 048
  12. GLUCOPHAGE [Concomitant]
     Active Substance: METFORMIN HYDROCHLORIDE
     Indication: Product used for unknown indication
     Dosage: WITH MEALS
     Route: 048
  13. TOPROL XL [Concomitant]
     Active Substance: METOPROLOL SUCCINATE
     Indication: Product used for unknown indication
     Route: 048
  14. MYCIFRADIN [Concomitant]
     Active Substance: NEOMYCIN SULFATE
     Indication: Product used for unknown indication
     Dosage: FOR 360 DOSES
     Route: 048
     Dates: start: 20240522, end: 20240927
  15. PRILOSEC [Concomitant]
     Active Substance: OMEPRAZOLE MAGNESIUM
     Indication: Gastric ulcer
     Route: 048
     Dates: start: 20211203
  16. MICRO K [Concomitant]
     Indication: Product used for unknown indication
     Route: 048
     Dates: start: 20240207
  17. ACTONEL [Concomitant]
     Active Substance: RISEDRONATE SODIUM
     Indication: Product used for unknown indication
     Route: 048
     Dates: start: 20210909
  18. ZOLOFT [Concomitant]
     Active Substance: SERTRALINE HYDROCHLORIDE
     Indication: Product used for unknown indication
     Route: 048
     Dates: start: 20210824
  19. ZINC SULFATE [Concomitant]
     Active Substance: ZINC SULFATE
     Indication: Product used for unknown indication
     Route: 048
     Dates: start: 20240522
  20. BENICAR [Concomitant]
     Active Substance: OLMESARTAN MEDOXOMIL
     Indication: Product used for unknown indication
     Route: 048
     Dates: start: 20240727

REACTIONS (2)
  - Death [Fatal]
  - Patient dissatisfaction with treatment [Unknown]

NARRATIVE: CASE EVENT DATE: 20250707
